FAERS Safety Report 22285192 (Version 1)
Quarter: 2023Q2

REPORT INFORMATION
  Report Type: Spontaneous
  Country: US (occurrence: US)
  Receive Date: 20230504
  Receipt Date: 20230504
  Transmission Date: 20230721
  Serious: No
  Sender: FDA-Public Use
  Company Number: US-BIOCRYST PHARMACEUTICALS, INC.-2023BCR00211

PATIENT

DRUGS (2)
  1. ORLADEYO [Suspect]
     Active Substance: BEROTRALSTAT HYDROCHLORIDE
     Indication: Hereditary angioedema
     Dosage: UNK
     Route: 048
  2. BACLOFEN [Concomitant]
     Active Substance: BACLOFEN
     Indication: Hereditary angioedema
     Dosage: UNK

REACTIONS (6)
  - Feeling abnormal [Unknown]
  - Disturbance in attention [Unknown]
  - Headache [Unknown]
  - Fatigue [Unknown]
  - Oropharyngeal discomfort [Unknown]
  - Pneumonia [Not Recovered/Not Resolved]
